FAERS Safety Report 24186582 (Version 1)
Quarter: 2024Q3

REPORT INFORMATION
  Report Type: Spontaneous
  Country: FR (occurrence: FR)
  Receive Date: 20240808
  Receipt Date: 20240808
  Transmission Date: 20241016
  Serious: Yes (Other)
  Sender: AUROBINDO
  Company Number: FR-AFSSAPS-MA2024001260

PATIENT
  Age: 73 Year
  Sex: Female

DRUGS (2)
  1. PRAMIPEXOLE [Interacting]
     Active Substance: PRAMIPEXOLE\PRAMIPEXOLE DIHYDROCHLORIDE
     Indication: Product used for unknown indication
     Dosage: UNK
     Route: 065
  2. NARDIL [Suspect]
     Active Substance: PHENELZINE SULFATE
     Indication: Depression
     Dosage: 4 DOSAGE FORM, ONCE A DAY
     Route: 048

REACTIONS (3)
  - Weight increased [Recovered/Resolved]
  - Orthostatic hypotension [Recovered/Resolved]
  - Cognitive disorder [Recovered/Resolved]
